FAERS Safety Report 4418138-1 (Version None)
Quarter: 2004Q3

REPORT INFORMATION
  Report Type: 
  Country: None (occurrence: None)
  Receive Date: 20040805
  Receipt Date: 20040805
  Transmission Date: 20050211
  Serious: Yes (Hospitalization)
  Sender: FDA-Public Use
  Company Number: None

PATIENT
  Age: 37 Year
  Sex: Male
  Weight: 98 kg

DRUGS (5)
  1. INTERFERON [Suspect]
     Indication: METASTATIC MALIGNANT MELANOMA
     Dosage: 10 M/M2, 5 DAYS, SQ
     Dates: start: 20010407, end: 20010411
  2. PROLEUKIN [Suspect]
     Indication: METASTATIC MALIGNANT MELANOMA
     Dosage: 3 MU, 20 DAYS, SQ
     Dates: start: 20010412, end: 20010510
  3. VICODIN [Concomitant]
  4. VICOPROFEN [Concomitant]
  5. NEURONTIN [Concomitant]

REACTIONS (4)
  - CENTRAL NERVOUS SYSTEM MASS [None]
  - MOBILITY DECREASED [None]
  - PAIN [None]
  - SPINAL CORD COMPRESSION [None]
